FAERS Safety Report 5382033-4 (Version None)
Quarter: 2007Q3

REPORT INFORMATION
  Report Type: 
  Country: None (occurrence: None)
  Receive Date: 20070709
  Receipt Date: 20070702
  Transmission Date: 20080115
  Serious: Yes (Hospitalization, Other)
  Sender: FDA-Public Use
  Company Number: US-ASTRAZENECA-2006UW22940

PATIENT
  Age: 540 Month
  Sex: Female
  Weight: 93.6 kg

DRUGS (3)
  1. SEROQUEL [Suspect]
     Indication: NIGHTMARE
     Dosage: 100-600MG
     Route: 048
     Dates: start: 19980101, end: 20010101
  2. SEROQUEL [Suspect]
     Route: 048
  3. RISPERDAL [Concomitant]
     Dates: start: 19970101

REACTIONS (5)
  - CARDIAC FAILURE CONGESTIVE [None]
  - DIABETIC COMA [None]
  - NEUROPATHY [None]
  - PNEUMONIA [None]
  - TYPE 2 DIABETES MELLITUS [None]
